FAERS Safety Report 5401031-5 (Version None)
Quarter: 2007Q3

REPORT INFORMATION
  Report Type: 
  Country: None (occurrence: None)
  Receive Date: 20070731
  Receipt Date: 20070727
  Transmission Date: 20080115
  Serious: Yes (Other)
  Sender: FDA-Public Use
  Company Number: ES-SP-2007-02647

PATIENT
  Age: 75 Year
  Sex: Male

DRUGS (1)
  1. IMMUCYST [Suspect]
     Indication: BLADDER CANCER
     Route: 043

REACTIONS (6)
  - EPIDIDYMITIS TUBERCULOUS [None]
  - FISTULA [None]
  - INCORRECT DOSE ADMINISTERED [None]
  - ORCHIDECTOMY [None]
  - SCROTAL SWELLING [None]
  - TESTICULAR PAIN [None]
